FAERS Safety Report 18200908 (Version 1)
Quarter: 2020Q3

REPORT INFORMATION
  Report Type: Spontaneous
  Country: US (occurrence: US)
  Receive Date: 20200826
  Receipt Date: 20200826
  Transmission Date: 20201103
  Serious: Yes (Other)
  Sender: FDA-Public Use
  Company Number: US-NOVOPROD-748581

PATIENT
  Age: 65 Year
  Sex: Female

DRUGS (4)
  1. OZEMPIC [Suspect]
     Active Substance: SEMAGLUTIDE
     Indication: INSULIN RESISTANCE
     Dosage: UNK
     Route: 058
     Dates: start: 201902
  2. VICTOZA [Suspect]
     Active Substance: LIRAGLUTIDE
     Indication: CARDIOVASCULAR EVENT PROPHYLAXIS
  3. OZEMPIC [Suspect]
     Active Substance: SEMAGLUTIDE
     Indication: CARDIOVASCULAR EVENT PROPHYLAXIS
  4. VICTOZA [Suspect]
     Active Substance: LIRAGLUTIDE
     Indication: INSULIN RESISTANCE
     Dosage: UNK
     Route: 058
     Dates: start: 201303

REACTIONS (2)
  - Off label use [Unknown]
  - Medullary thyroid cancer [Unknown]
